FAERS Safety Report 24434105 (Version 1)
Quarter: 2024Q4

REPORT INFORMATION
  Report Type: Spontaneous
  Country: FR (occurrence: FR)
  Receive Date: 20241014
  Receipt Date: 20241014
  Transmission Date: 20250115
  Serious: Yes (Other)
  Sender: BRISTOL-MYERS SQUIBB COMPANY
  Company Number: FR-STADA-01299257

PATIENT
  Age: 60 Year
  Sex: Female

DRUGS (12)
  1. REVLIMID [Suspect]
     Active Substance: LENALIDOMIDE
     Indication: Plasma cell myeloma
     Dosage: DRD REGIMEN; RECEIVED 20 CYCLES
  2. THALIDOMIDE [Suspect]
     Active Substance: THALIDOMIDE
     Indication: Plasma cell myeloma
     Dosage: VTD REGIMEN; RECEIVED 4 CYCLES
  3. THALIDOMIDE [Suspect]
     Active Substance: THALIDOMIDE
     Dosage: VTD REGIMEN; RECEIVED 2 CYCLES
  4. DEXAMETHASONE [Suspect]
     Active Substance: DEXAMETHASONE
     Indication: Plasma cell myeloma
     Dosage: VTD REGIMEN; RECEIVED 2 CYCLES
  5. DEXAMETHASONE [Suspect]
     Active Substance: DEXAMETHASONE
     Dosage: DRD REGIMEN; RECEIVED 20 CYCLES
  6. DEXAMETHASONE [Suspect]
     Active Substance: DEXAMETHASONE
     Dosage: VTD REGIMEN; RECEIVED 4 CYCLES
  7. BORTEZOMIB [Suspect]
     Active Substance: BORTEZOMIB
     Indication: Plasma cell myeloma
     Dosage: VTD REGIMEN; RECEIVED 2 CYCLES
  8. BORTEZOMIB [Suspect]
     Active Substance: BORTEZOMIB
     Dosage: VTD REGIMEN; RECEIVED 4 CYCLES
  9. DARATUMUMAB [Concomitant]
     Active Substance: DARATUMUMAB
     Indication: Plasma cell myeloma
     Dosage: DRD X 20
  10. CARFILZOMIB [Concomitant]
     Active Substance: CARFILZOMIB
     Indication: Plasma cell myeloma
  11. POMALIDOMIDE [Concomitant]
     Active Substance: POMALIDOMIDE
     Indication: Plasma cell myeloma
  12. MELPHALAN [Concomitant]
     Active Substance: MELPHALAN
     Indication: Plasma cell myeloma

REACTIONS (1)
  - Posterior reversible encephalopathy syndrome [Recovered/Resolved]
